FAERS Safety Report 8834777 (Version 1)
Quarter: 2012Q4

REPORT INFORMATION
  Report Type: 
  Country: US (occurrence: US)
  Receive Date: 20121010
  Receipt Date: 20121010
  Transmission Date: 20130627
  Serious: Yes (Other)
  Sender: FDA-Public Use
  Company Number: US-GLAXOSMITHKLINE-A0972077A

PATIENT
  Age: 45 Year
  Sex: Female
  Weight: 142.1 kg

DRUGS (19)
  1. BENLYSTA [Suspect]
     Indication: SYSTEMIC LUPUS ERYTHEMATOSUS
     Dosage: 120MG Cyclic
     Route: 042
     Dates: start: 20120319
  2. PREDNISONE [Concomitant]
  3. PLAQUENIL [Concomitant]
  4. INSULIN LANTUS [Concomitant]
  5. SYNTHROID [Concomitant]
  6. MELOXICAM [Concomitant]
  7. COUMADIN [Concomitant]
  8. SINGULAR [Concomitant]
  9. PROAIR HFA [Concomitant]
  10. DURAGESIC PATCH [Concomitant]
     Indication: PAIN
  11. PREVACID [Concomitant]
  12. SOMA [Concomitant]
  13. PHENERGAN [Concomitant]
  14. BENADRYL [Concomitant]
     Indication: SLEEP DISORDER
  15. OXYCODONE [Concomitant]
     Indication: PAIN
  16. VITAMIN B12 [Concomitant]
  17. VITAMIN D [Concomitant]
     Indication: MEDICAL DIET
  18. LISINOPRIL [Concomitant]
     Indication: BLOOD PRESSURE INCREASED
  19. ENBREL [Concomitant]

REACTIONS (7)
  - Eye haemorrhage [Not Recovered/Not Resolved]
  - Chest pain [Not Recovered/Not Resolved]
  - Pyrexia [Not Recovered/Not Resolved]
  - Cough [Not Recovered/Not Resolved]
  - Oropharyngeal pain [Not Recovered/Not Resolved]
  - Ocular hyperaemia [Not Recovered/Not Resolved]
  - Pain in extremity [Not Recovered/Not Resolved]
